FAERS Safety Report 6253423-2 (Version None)
Quarter: 2009Q3

REPORT INFORMATION
  Report Type: 
  Country: None (occurrence: None)
  Receive Date: 20090701
  Receipt Date: 20090629
  Transmission Date: 20100115
  Serious: No
  Sender: FDA-Public Use
  Company Number: US-B.I. PHARMACEUTICALS,INC./RIDGEFIELD-2009-BP-07801BP

PATIENT
  Age: 65 Year
  Sex: Male

DRUGS (5)
  1. FLOMAX [Suspect]
     Indication: BENIGN PROSTATIC HYPERPLASIA
     Dosage: 0.4 MG
     Route: 048
     Dates: start: 20090601
  2. HYTRIN [Concomitant]
     Indication: HYPERTENSION
     Dosage: 10 MG
  3. DIOVAN [Concomitant]
     Indication: HYPERTENSION
     Dosage: 320 MG
  4. TOPROL-XL [Concomitant]
     Indication: HYPERTENSION
     Dosage: 100 MG
  5. NORVASC [Concomitant]
     Indication: HYPERTENSION
     Dosage: 5 MG

REACTIONS (2)
  - NOCTURIA [None]
  - POLLAKIURIA [None]
